FAERS Safety Report 24323017 (Version 1)
Quarter: 2024Q3

REPORT INFORMATION
  Report Type: Spontaneous
  Country: BR (occurrence: BR)
  Receive Date: 20240916
  Receipt Date: 20240916
  Transmission Date: 20241016
  Serious: Yes (Other)
  Sender: ASTELLAS
  Company Number: BR-PFIZER INC-PV202400115939

PATIENT
  Age: 83 Year
  Sex: Male

DRUGS (1)
  1. PADCEV [Suspect]
     Active Substance: ENFORTUMAB VEDOTIN-EJFV
     Indication: Transitional cell carcinoma
     Dosage: 1.25 MG/KG EVERY 28 DAYS (ON D1, D8, AND D15 EVERY 28 DAYS)
     Route: 042
     Dates: start: 20240115, end: 20240408

REACTIONS (7)
  - Neoplasm progression [Not Recovered/Not Resolved]
  - Neuropathy peripheral [Recovering/Resolving]
  - Dry eye [Not Recovered/Not Resolved]
  - Vision blurred [Recovering/Resolving]
  - Ocular hyperaemia [Recovering/Resolving]
  - Eye haemorrhage [Recovering/Resolving]
  - Eye pain [Recovering/Resolving]

NARRATIVE: CASE EVENT DATE: 20240214
